FAERS Safety Report 9492379 (Version 3)
Quarter: 2013Q3

REPORT INFORMATION
  Report Type: Report from Study
  Country: TR (occurrence: TR)
  Receive Date: 20130830
  Receipt Date: 20130916
  Transmission Date: 20140515
  Serious: Yes (Hospitalization)
  Sender: FDA-Public Use
  Company Number: TR-TEVA-429644USA

PATIENT
  Age: 66 Year
  Sex: Male
  Weight: 94.2 kg

DRUGS (8)
  1. BENDAMUSTINE [Suspect]
     Indication: CHRONIC LYMPHOCYTIC LEUKAEMIA
     Route: 042
     Dates: start: 20130710
  2. BENDAMUSTINE [Suspect]
     Indication: LYMPHOCYTIC LYMPHOMA
     Route: 042
     Dates: start: 20130711
  3. RITUXIMAB [Suspect]
     Indication: CHRONIC LYMPHOCYTIC LEUKAEMIA
     Route: 042
     Dates: start: 20130709
  4. RITUXIMAB [Suspect]
     Indication: LYMPHOCYTIC LYMPHOMA
  5. IBRUTINIB/PLACEBO [Suspect]
     Indication: CHRONIC LYMPHOCYTIC LEUKAEMIA
     Dosage: 420 MILLIGRAM DAILY;
     Route: 048
     Dates: start: 20130710
  6. IBRUTINIB/PLACEBO [Suspect]
     Indication: LYMPHOCYTIC LYMPHOMA
     Dosage: 420 MILLIGRAM DAILY;
     Route: 048
     Dates: start: 20130819
  7. TAVANIC [Concomitant]
     Dosage: 500 MILLIGRAM DAILY;
     Route: 048
  8. SINORETIK [Concomitant]
     Indication: HYPERTENSION
     Dosage: 1 DOSAGE FORMS DAILY;
     Route: 048

REACTIONS (1)
  - Pneumonitis [Recovered/Resolved]
